FAERS Safety Report 5162679-9 (Version None)
Quarter: 2006Q4

REPORT INFORMATION
  Report Type: 
  Country: None (occurrence: None)
  Receive Date: 20061121
  Receipt Date: 20061116
  Transmission Date: 20070319
  Serious: Yes (Death)
  Sender: FDA-Public Use
  Company Number: 2006BI012768

PATIENT
  Age: 55 Year
  Sex: Female

DRUGS (5)
  1. AVONEX [Suspect]
     Indication: MULTIPLE SCLEROSIS
     Dosage: IM
     Route: 030
  2. CLONAZEPAM [Concomitant]
  3. AMBIEN [Concomitant]
  4. CHOLESTYRAMINE [Concomitant]
  5. CYCLOBENZAPRINE HCL [Concomitant]

REACTIONS (1)
  - HAEMORRHAGE [None]
